FAERS Safety Report 25779331 (Version 1)
Quarter: 2025Q3

REPORT INFORMATION
  Report Type: Spontaneous
  Country: US (occurrence: US)
  Receive Date: 20250909
  Receipt Date: 20250909
  Transmission Date: 20251020
  Serious: Yes (Hospitalization, Other)
  Sender: SANOFI AVENTIS
  Company Number: US-SA-2025SA268261

PATIENT
  Sex: Male

DRUGS (7)
  1. DUPIXENT [Suspect]
     Active Substance: DUPILUMAB
     Indication: Haemochromatosis
     Dosage: 300 MG, QOW
     Route: 058
  2. HUMULIN N [Concomitant]
     Active Substance: INSULIN HUMAN
  3. KERENDIA [Concomitant]
     Active Substance: FINERENONE
  4. PIOGLITAZONE [Concomitant]
     Active Substance: PIOGLITAZONE
  5. PRAVASTATIN [Concomitant]
     Active Substance: PRAVASTATIN
  6. RYBELSUS [Concomitant]
     Active Substance: SEMAGLUTIDE
  7. TAMSULOSIN [Concomitant]
     Active Substance: TAMSULOSIN

REACTIONS (6)
  - Pneumonia [Unknown]
  - Ileus [Unknown]
  - Hypoaesthesia [Not Recovered/Not Resolved]
  - Abdominal pain upper [Unknown]
  - Injection site pain [Unknown]
  - Product use in unapproved indication [Unknown]
